FAERS Safety Report 7879432-5 (Version None)
Quarter: 2011Q4

REPORT INFORMATION
  Report Type: 
  Country: None (occurrence: None)
  Receive Date: 20111101
  Receipt Date: 20111020
  Transmission Date: 20120403
  Serious: Yes (Death)
  Sender: FDA-Public Use
  Company Number: JP-UCBSA-042065

PATIENT
  Age: 83 Year
  Sex: Female

DRUGS (2)
  1. DEPAKENE [Concomitant]
     Indication: PARTIAL SEIZURES WITH SECONDARY GENERALISATION
     Dosage: TOTAL DAILY DOSE : 600 MG
     Route: 048
     Dates: end: 20110907
  2. KEPPRA [Suspect]
     Indication: PARTIAL SEIZURES WITH SECONDARY GENERALISATION
     Route: 048
     Dates: start: 20110719, end: 20110907

REACTIONS (1)
  - LUNG NEOPLASM MALIGNANT [None]
